FAERS Safety Report 21739125 (Version 1)
Quarter: 2022Q4

REPORT INFORMATION
  Report Type: Spontaneous
  Country: US (occurrence: None)
  Receive Date: 20221215
  Receipt Date: 20221215
  Transmission Date: 20230112
  Serious: No
  Sender: FDA-Public Use
  Company Number: None

PATIENT
  Age: 59 Year
  Sex: Male

DRUGS (4)
  1. ERENUMAB-AOOE [Suspect]
     Active Substance: ERENUMAB-AOOE
  2. AIMOVIG [Concomitant]
  3. AMLODIPINE [Concomitant]
  4. LOSARTAN [Concomitant]
     Dates: start: 20220601, end: 20220711

REACTIONS (3)
  - Blood pressure increased [None]
  - Heart rate increased [None]
  - Hypotension [None]

NARRATIVE: CASE EVENT DATE: 20220706
